FAERS Safety Report 7078167-9 (Version None)
Quarter: 2010Q4

REPORT INFORMATION
  Report Type: 
  Country: None (occurrence: None)
  Receive Date: 20101101
  Receipt Date: 20101101
  Transmission Date: 20110411
  Serious: No
  Sender: FDA-Public Use
  Company Number: None

PATIENT
  Age: 58 Year
  Sex: Male

DRUGS (3)
  1. AVALIDE [Suspect]
     Dates: start: 20080205, end: 20090414
  2. CHIRO-ZYME TRMA [Suspect]
     Dates: start: 20090101, end: 20090201
  3. VYTORIN [Suspect]
     Dates: start: 20080205, end: 20090310

REACTIONS (2)
  - HEPATITIS ACUTE [None]
  - LIVER DISORDER [None]
